FAERS Safety Report 7774646-7 (Version None)
Quarter: 2011Q3

REPORT INFORMATION
  Report Type: 
  Country: None (occurrence: None)
  Receive Date: 20110923
  Receipt Date: 20110916
  Transmission Date: 20111222
  Serious: Yes (Other)
  Sender: FDA-Public Use
  Company Number: FR-PFIZER INC-2011144630

PATIENT
  Age: 59 Year
  Sex: Male

DRUGS (1)
  1. VIAGRA [Suspect]
     Indication: ERECTILE DYSFUNCTION
     Dosage: UNK

REACTIONS (4)
  - VISUAL FIELD DEFECT [None]
  - SCOTOMA [None]
  - CHORIORETINAL ATROPHY [None]
  - VISUAL ACUITY REDUCED [None]
